FAERS Safety Report 17598642 (Version 1)
Quarter: 2020Q1

REPORT INFORMATION
  Report Type: Spontaneous
  Country: US (occurrence: US)
  Receive Date: 20200330
  Receipt Date: 20200330
  Transmission Date: 20200409
  Serious: Yes (Hospitalization)
  Sender: FDA-Public Use
  Company Number: US-MYLANLABS-2020M1032961

PATIENT
  Age: 74 Year
  Sex: Female

DRUGS (2)
  1. NORTRIPTYLINE [Suspect]
     Active Substance: NORTRIPTYLINE
     Indication: COUGH
     Route: 065
  2. GABAPENTIN. [Suspect]
     Active Substance: GABAPENTIN
     Indication: COUGH
     Route: 065

REACTIONS (2)
  - Drug ineffective [Unknown]
  - Off label use [Unknown]
